FAERS Safety Report 4524650-7 (Version None)
Quarter: 2004Q4

REPORT INFORMATION
  Report Type: 
  Country: None (occurrence: None)
  Receive Date: 20041211
  Receipt Date: 20041116
  Transmission Date: 20050328
  Serious: Yes (Disabling)
  Sender: FDA-Public Use
  Company Number: JP-MERCK-0411USA03465

PATIENT
  Age: 56 Year
  Sex: Male

DRUGS (9)
  1. PEPCID RPD [Suspect]
     Indication: THERAPEUTIC PROCEDURE
     Route: 048
     Dates: start: 20040807, end: 20041013
  2. PEPCID RPD [Suspect]
     Route: 048
     Dates: start: 20040428, end: 20040515
  3. MEPTIN [Concomitant]
     Route: 048
     Dates: start: 20010418
  4. MEPTIN [Concomitant]
     Route: 065
     Dates: start: 20040722
  5. THEO-DUR [Concomitant]
     Route: 048
     Dates: start: 20010418
  6. MUCOSTA [Concomitant]
     Route: 048
     Dates: start: 20040428, end: 20040917
  7. SELBEX [Concomitant]
     Route: 048
     Dates: start: 20040428, end: 20040917
  8. LANSOPRAZOLE [Concomitant]
     Route: 048
     Dates: start: 20040612, end: 20040614
  9. LANSOPRAZOLE [Concomitant]
     Route: 048
     Dates: start: 20041013

REACTIONS (5)
  - DIARRHOEA [None]
  - HELICOBACTER PYLORI IDENTIFICATION TEST POSITIVE [None]
  - MELAENA [None]
  - OEDEMA PERIPHERAL [None]
  - WEIGHT INCREASED [None]
